FAERS Safety Report 23848556 (Version 1)
Quarter: 2024Q2

REPORT INFORMATION
  Report Type: Spontaneous
  Country: US (occurrence: None)
  Receive Date: 20240511
  Receipt Date: 20240511
  Transmission Date: 20240715
  Serious: No
  Sender: FDA-Public Use
  Company Number: None

PATIENT
  Sex: Female
  Weight: 15.6 kg

DRUGS (3)
  1. CYCLOPHOSPHAMIDE [Suspect]
     Active Substance: CYCLOPHOSPHAMIDE
     Dates: end: 20240416
  2. MYCOPHENOLATE MOFETIL [Suspect]
     Active Substance: MYCOPHENOLATE MOFETIL
     Dates: end: 20240425
  3. TACROLIMUS [Suspect]
     Active Substance: TACROLIMUS
     Dates: end: 20240425

REACTIONS (7)
  - Fluid retention [None]
  - Weight increased [None]
  - Thrombocytopenia [None]
  - Blood bilirubin increased [None]
  - Venoocclusive disease [None]
  - Acute hepatic failure [None]
  - Respiratory failure [None]

NARRATIVE: CASE EVENT DATE: 20240425
